FAERS Safety Report 16861593 (Version 1)
Quarter: 2019Q3

REPORT INFORMATION
  Report Type: Spontaneous
  Country: CA (occurrence: CA)
  Receive Date: 20190927
  Receipt Date: 20190927
  Transmission Date: 20191005
  Serious: Yes (Hospitalization, Other)
  Sender: FDA-Public Use
  Company Number: CA-AMGEN-CANSP2019155088

PATIENT
  Age: 54 Year
  Sex: Female

DRUGS (1)
  1. PROLIA [Suspect]
     Active Substance: DENOSUMAB
     Indication: OSTEOPOROSIS POSTMENOPAUSAL
     Dosage: UNK
     Route: 065
     Dates: start: 20190716

REACTIONS (20)
  - Dehydration [Unknown]
  - Throat irritation [Unknown]
  - Diplopia [Unknown]
  - Influenza like illness [Unknown]
  - Diarrhoea [Unknown]
  - Paraesthesia [Unknown]
  - Candida infection [Unknown]
  - Vertigo [Unknown]
  - Toothache [Unknown]
  - Gastrooesophageal reflux disease [Unknown]
  - Pruritus [Unknown]
  - Bone pain [Unknown]
  - Dry mouth [Unknown]
  - Arthralgia [Unknown]
  - Gingival recession [Unknown]
  - Asthenia [Unknown]
  - Back pain [Unknown]
  - Dysphonia [Unknown]
  - Muscular weakness [Unknown]
  - Headache [Unknown]

NARRATIVE: CASE EVENT DATE: 20190717
